FAERS Safety Report 7335621-X (Version None)
Quarter: 2011Q1

REPORT INFORMATION
  Report Type: 
  Country: None (occurrence: None)
  Receive Date: 20110307
  Receipt Date: 20110302
  Transmission Date: 20110831
  Serious: Yes (Hospitalization)
  Sender: FDA-Public Use
  Company Number: A0877041A

PATIENT
  Age: 68 Year
  Sex: Male

DRUGS (1)
  1. AVANDIA [Suspect]
     Dosage: 4MG PER DAY
     Route: 048
     Dates: start: 20050301, end: 20071001

REACTIONS (6)
  - ISCHAEMIA [None]
  - CORONARY ARTERY DISEASE [None]
  - CARDIAC ARREST [None]
  - FLUID RETENTION [None]
  - PAIN [None]
  - GAIT DISTURBANCE [None]
